FAERS Safety Report 10147145 (Version 2)
Quarter: 2014Q2

REPORT INFORMATION
  Report Type: Report from Study
  Country: US (occurrence: US)
  Receive Date: 20140501
  Receipt Date: 20140605
  Transmission Date: 20141212
  Serious: No
  Sender: FDA-Public Use
  Company Number: US-SA-2014SA055520

PATIENT
  Age: 65 Year
  Sex: Male

DRUGS (17)
  1. KYNAMRO [Suspect]
     Indication: TYPE IIA HYPERLIPIDAEMIA
     Route: 065
     Dates: start: 201310
  2. HYDROCORTISONE [Concomitant]
     Dosage: 1% LOTION
  3. CHONDROITIN SULFATE/GLUCOSAMINE [Concomitant]
     Indication: ARTHRITIS
     Dosage: 0700 HOURS
  4. CHONDROITIN SULFATE/GLUCOSAMINE [Concomitant]
     Indication: PAIN
     Dosage: 0700 HOURS
  5. SITOSTEROL [Concomitant]
     Indication: BLOOD CHOLESTEROL
  6. KRILL OIL [Concomitant]
     Indication: BLOOD CHOLESTEROL
     Dosage: AT 0700 AND 1730 HOURS
  7. COQ10 [Concomitant]
     Indication: BLOOD CHOLESTEROL
     Dosage: ON FRIDAY
  8. CRESTOR [Concomitant]
     Indication: BLOOD CHOLESTEROL
     Dosage: FRIDAY
  9. METOPROLOL [Concomitant]
     Dosage: AT 1730 HOURS
  10. ASPIRIN [Concomitant]
     Dosage: AT 2300 HOURS
  11. TAMSULOSIN [Concomitant]
     Dosage: AT 1700 HOURS
  12. CARBIDOPA/LEVODOPA [Concomitant]
     Indication: ESSENTIAL TREMOR
     Dosage: 25-100 TAB, 1.5 TAB AT 0700, 1200 AND 1730 HOURS DAILY
  13. PRAMIPEXOLE DIHYDROCHLORIDE [Concomitant]
     Indication: ESSENTIAL TREMOR
     Dosage: 0700 HOURS
  14. CITALOPRAM [Concomitant]
     Indication: ANXIETY
     Dosage: 0700 HOURS
  15. METHIONINE [Concomitant]
     Indication: SUPPLEMENTATION THERAPY
     Dosage: 2 TABS, 2 TIMES A DAY
  16. GLUTAMINE [Concomitant]
     Indication: SUPPLEMENTATION THERAPY
     Dosage: POWDER, 0700 HRS DOSE:1 TEASPOON(S)
  17. ALL OTHER THERAPEUTIC PRODUCTS [Concomitant]
     Indication: SUPPLEMENTATION THERAPY
     Dosage: AT 0700 AND 1730 HOURS

REACTIONS (1)
  - Pruritus [Not Recovered/Not Resolved]
